FAERS Safety Report 12309577 (Version 2)
Quarter: 2020Q1

REPORT INFORMATION
  Report Type: Spontaneous
  Country: FR (occurrence: FR)
  Receive Date: 20160427
  Receipt Date: 20200212
  Transmission Date: 20200409
  Serious: Yes (Hospitalization)
  Sender: FDA-Public Use
  Company Number: FR-JNJFOC-20160418779

PATIENT
  Age: 35 Year
  Sex: Female
  Weight: 60 kg

DRUGS (8)
  1. PENTASA [Suspect]
     Active Substance: MESALAMINE
     Indication: HIV INFECTION
     Route: 048
     Dates: start: 2012
  2. NORVIR [Suspect]
     Active Substance: RITONAVIR
     Indication: HIV INFECTION
     Route: 048
     Dates: start: 2013
  3. DELURSAN [Suspect]
     Active Substance: URSODIOL
     Indication: CROHN^S DISEASE
     Route: 048
  4. PREZISTA [Suspect]
     Active Substance: DARUNAVIR ETHANOLATE
     Indication: HIV INFECTION
     Route: 048
     Dates: start: 2013
  5. INDOCOLLYRE [Suspect]
     Active Substance: INDOMETHACIN
     Indication: CATARACT OPERATION
     Route: 047
     Dates: start: 20160122
  6. TRUVADA [Suspect]
     Active Substance: EMTRICITABINE\TENOFOVIR DISOPROXIL FUMARATE
     Indication: HIV INFECTION
     Route: 048
     Dates: start: 2013
  7. TOBRADEX [Suspect]
     Active Substance: DEXAMETHASONE\TOBRAMYCIN
     Indication: CATARACT OPERATION
     Route: 047
     Dates: start: 20160122
  8. PENTASA [Suspect]
     Active Substance: MESALAMINE
     Indication: CROHN^S DISEASE

REACTIONS (3)
  - Retinal vasculitis [Not Recovered/Not Resolved]
  - Uveitis [Not Recovered/Not Resolved]
  - Papilloedema [Not Recovered/Not Resolved]

NARRATIVE: CASE EVENT DATE: 201601
